FAERS Safety Report 7828883-3 (Version None)
Quarter: 2011Q4

REPORT INFORMATION
  Report Type: 
  Country: None (occurrence: None)
  Receive Date: 20111020
  Receipt Date: 20100311
  Transmission Date: 20120403
  Serious: No
  Sender: FDA-Public Use
  Company Number: US-BAYER-201016423NA

PATIENT
  Sex: Female

DRUGS (1)
  1. CIPROFLOXACIN [Suspect]

REACTIONS (4)
  - DIPLOPIA [None]
  - OEDEMA PERIPHERAL [None]
  - DIZZINESS [None]
  - INSOMNIA [None]
